FAERS Safety Report 11777776 (Version 4)
Quarter: 2016Q1

REPORT INFORMATION
  Report Type: Report from Study
  Country: US (occurrence: US)
  Receive Date: 20151125
  Receipt Date: 20160307
  Transmission Date: 20160525
  Serious: Yes (Death, Hospitalization)
  Sender: FDA-Public Use
  Company Number: US-ACTELION-A-NJ2015-127574

PATIENT
  Age: 66 Year
  Sex: Female

DRUGS (4)
  1. MACITENTAN [Suspect]
     Active Substance: MACITENTAN
     Indication: PULMONARY ARTERIAL HYPERTENSION
     Dosage: 10 MG, QD
     Route: 048
     Dates: start: 20150326, end: 20160203
  2. TYVASO [Concomitant]
     Active Substance: TREPROSTINIL
  3. ADCIRCA [Concomitant]
     Active Substance: TADALAFIL
  4. REVATIO [Concomitant]
     Active Substance: SILDENAFIL CITRATE

REACTIONS (8)
  - Squamous cell carcinoma of lung [Fatal]
  - Dyspnoea [Unknown]
  - Pneumonia [Unknown]
  - Skin discolouration [Unknown]
  - Pulmonary hypertension [Fatal]
  - Oxygen saturation decreased [Unknown]
  - Respiratory disorder [Fatal]
  - Chronic obstructive pulmonary disease [Fatal]
